FAERS Safety Report 24564378 (Version 1)
Quarter: 2024Q4

REPORT INFORMATION
  Report Type: Spontaneous
  Country: GR (occurrence: GR)
  Receive Date: 20241030
  Receipt Date: 20241030
  Transmission Date: 20250115
  Serious: Yes (Other)
  Sender: EMD SERONO INC
  Company Number: GR-Merck Healthcare KGaA-2024056871

PATIENT
  Sex: Female

DRUGS (1)
  1. MAVENCLAD [Suspect]
     Active Substance: CLADRIBINE
     Indication: Multiple sclerosis
     Dosage: FIRST YEAR THERAPY

REACTIONS (3)
  - Papilloma viral infection [Unknown]
  - Cervix carcinoma stage 0 [Unknown]
  - Adenocarcinoma of the cervix [Unknown]
